FAERS Safety Report 6211952-1 (Version None)
Quarter: 2009Q2

REPORT INFORMATION
  Report Type: 
  Country: None (occurrence: None)
  Receive Date: 20090602
  Receipt Date: 20090520
  Transmission Date: 20091009
  Serious: Yes (Other)
  Sender: FDA-Public Use
  Company Number: IT-ELI_LILLY_AND_COMPANY-IT200905004043

PATIENT
  Sex: Male

DRUGS (2)
  1. CIALIS [Suspect]
     Indication: ERECTILE DYSFUNCTION
     Dosage: 5 MG, AS NEEDED
     Route: 048
     Dates: start: 20090512, end: 20090512
  2. ANAFRANIL [Concomitant]
     Dosage: 75 MG, UNKNOWN
     Route: 048

REACTIONS (2)
  - AMAUROSIS FUGAX [None]
  - INTRAOCULAR PRESSURE INCREASED [None]
